FAERS Safety Report 9631391 (Version 1)
Quarter: 2013Q4

REPORT INFORMATION
  Report Type: Spontaneous
  Country: US (occurrence: None)
  Receive Date: 20131015
  Receipt Date: 20131015
  Transmission Date: 20140711
  Serious: Yes (Other)
  Sender: FDA-Public Use
  Company Number: AUR-APL-2013-08366

PATIENT
  Age: 52 Year
  Sex: Male

DRUGS (3)
  1. RIBAVIRIN (RIBAVIRIN) [Suspect]
     Indication: HEPATITIS C
     Dosage: (2 IN 1 D) ORAL
     Route: 048
     Dates: start: 201301
  2. PEGINTERFERON ALFA-2B [Suspect]
     Indication: HEPATITIS C
     Dosage: (WK) SUBCUTANEOUS
     Route: 058
     Dates: start: 201301
  3. TELAPREVIR (TELAPREVIR) [Suspect]
     Indication: HEPATITIS C
     Dosage: 2250 MG (750 MG, 3 IN 1 D), ORAL
     Route: 048
     Dates: start: 20130129

REACTIONS (12)
  - Application site erythema [None]
  - Off label use [None]
  - Dizziness [None]
  - Dizziness [None]
  - Lethargy [None]
  - Visual impairment [None]
  - Pruritus [None]
  - Fatigue [None]
  - Anaemia [None]
  - Dizziness [None]
  - Dyspnoea [None]
  - Apnoea [None]
